FAERS Safety Report 6221423-4 (Version None)
Quarter: 2009Q2

REPORT INFORMATION
  Report Type: 
  Country: None (occurrence: None)
  Receive Date: 20090610
  Receipt Date: 20090527
  Transmission Date: 20091009
  Serious: Yes (Hospitalization, Other)
  Sender: FDA-Public Use
  Company Number: ES-ELI_LILLY_AND_COMPANY-ES200905005758

PATIENT
  Age: 67 Year
  Sex: Female

DRUGS (1)
  1. FORTEO [Suspect]
     Indication: OSTEOPOROSIS
     Dosage: 20 UG, UNK
     Route: 058
     Dates: start: 20081201, end: 20090401

REACTIONS (8)
  - ARTERIAL INJURY [None]
  - ASTHENIA [None]
  - FALL [None]
  - HEAD INJURY [None]
  - LIVER DISORDER [None]
  - MUSCLE ATROPHY [None]
  - PROCEDURAL COMPLICATION [None]
  - SPINAL FRACTURE [None]
